FAERS Safety Report 21843146 (Version 3)
Quarter: 2023Q2

REPORT INFORMATION
  Report Type: Other
  Country: CO (occurrence: CO)
  Receive Date: 20230110
  Receipt Date: 20230418
  Transmission Date: 20230722
  Serious: Yes (Death, Hospitalization)
  Sender: FDA-Public Use
  Company Number: CO-TOLMAR, INC.-22CO037415

PATIENT
  Age: 91 Year
  Sex: Male
  Weight: 50 kg

DRUGS (4)
  1. ELIGARD [Suspect]
     Active Substance: LEUPROLIDE ACETATE
     Indication: Prostate cancer
     Dosage: 22.5 MILLIGRAM, Q 3 MONTH
     Route: 058
     Dates: start: 20220707
  2. FLUOXETINE [Concomitant]
     Active Substance: FLUOXETINE HYDROCHLORIDE
     Indication: Dementia Alzheimer^s type
  3. QUETIAPINE [Concomitant]
     Active Substance: QUETIAPINE
     Indication: Dementia Alzheimer^s type
  4. LEVOMEPROMAZINE [Concomitant]
     Active Substance: LEVOMEPROMAZINE
     Indication: Dementia Alzheimer^s type

REACTIONS (12)
  - Cardio-respiratory arrest [Fatal]
  - Pneumonia [Not Recovered/Not Resolved]
  - Decubitus ulcer [Unknown]
  - Hypoglycaemia [Recovered/Resolved]
  - Mobility decreased [Unknown]
  - Peripheral coldness [Unknown]
  - Asphyxia [Not Recovered/Not Resolved]
  - Hypertension [Recovered/Resolved]
  - Intentional product use issue [Not Recovered/Not Resolved]
  - Productive cough [Not Recovered/Not Resolved]
  - Product dose omission issue [Unknown]
  - Pyrexia [Not Recovered/Not Resolved]

NARRATIVE: CASE EVENT DATE: 20221222
